FAERS Safety Report 5633122-8 (Version None)
Quarter: 2008Q1

REPORT INFORMATION
  Report Type: 
  Country: None (occurrence: None)
  Receive Date: 20080221
  Receipt Date: 20080208
  Transmission Date: 20080703
  Serious: Yes (Hospitalization, Disabling)
  Sender: FDA-Public Use
  Company Number: US-BAYER-200712720BCC

PATIENT
  Age: 54 Year
  Sex: Female
  Weight: 45 kg

DRUGS (37)
  1. ALEVE [Suspect]
     Indication: NERVE COMPRESSION
     Dosage: UNIT DOSE: 220 MG
     Route: 048
     Dates: start: 20070101, end: 20070209
  2. NITROGLYCERIN [Concomitant]
     Route: 060
     Dates: start: 20070206, end: 20070308
  3. SURFAK [Concomitant]
     Indication: CONSTIPATION
     Route: 048
  4. DULCOLAX [Concomitant]
     Indication: CONSTIPATION
     Route: 054
     Dates: start: 20070206, end: 20070308
  5. MILK OF MAGNESIA [Concomitant]
     Indication: CONSTIPATION
     Route: 048
     Dates: start: 20070206, end: 20070308
  6. METAMUCIL [Concomitant]
     Indication: CONSTIPATION
     Route: 048
  7. RESTORIL [Concomitant]
     Indication: INSOMNIA
     Route: 048
     Dates: start: 20070206, end: 20070308
  8. ROBITUSSIN DM [Concomitant]
     Indication: COUGH
     Route: 048
  9. TYLENOL (CAPLET) [Concomitant]
     Indication: PAIN
     Route: 048
     Dates: start: 20070206, end: 20070308
  10. TYLENOL (CAPLET) [Concomitant]
     Route: 054
     Dates: start: 20070206, end: 20070308
  11. NORCO [Concomitant]
     Indication: PAIN
     Route: 048
     Dates: start: 20070206, end: 20070308
  12. MAALOX [Concomitant]
     Indication: DYSPEPSIA
     Route: 048
     Dates: start: 20070206, end: 20070308
  13. PROMETHAZINE [Concomitant]
     Indication: NAUSEA
     Route: 042
     Dates: start: 20070206, end: 20070308
  14. PROMETHAZINE [Concomitant]
     Route: 048
  15. LIDOCAINE 1% [Concomitant]
     Route: 042
     Dates: start: 20070206, end: 20070308
  16. DESTIN [Concomitant]
     Indication: ERYTHEMA
     Route: 061
     Dates: start: 20070206, end: 20070308
  17. CARMEX [Concomitant]
     Indication: CHAPPED LIPS
     Route: 061
     Dates: start: 20070206, end: 20070308
  18. PROTONIX [Concomitant]
     Route: 042
     Dates: start: 20070206, end: 20070308
  19. PROTONIX [Concomitant]
     Route: 048
     Dates: start: 20070207, end: 20070309
  20. MORPHINE [Concomitant]
     Indication: PAIN
     Route: 042
     Dates: start: 20070206, end: 20070308
  21. LEVAQUIN [Concomitant]
     Route: 042
     Dates: start: 20070206, end: 20070309
  22. PRILOSEC [Concomitant]
  23. DEMEROL [Concomitant]
     Route: 042
     Dates: start: 20070205, end: 20070206
  24. ZOFRAN [Concomitant]
     Route: 042
     Dates: start: 20070205, end: 20070205
  25. SODIUM CHLORIDE INJ [Concomitant]
     Route: 042
     Dates: start: 20070205, end: 20070308
  26. KETOROLAC TROMETHAMINE [Concomitant]
     Route: 042
     Dates: start: 20070205, end: 20070205
  27. ANZEMET [Concomitant]
     Dates: start: 20070205, end: 20070205
  28. SURFAK [Concomitant]
     Route: 048
     Dates: start: 20070206, end: 20070308
  29. HYDROCIL [Concomitant]
     Indication: CONSTIPATION
     Route: 048
     Dates: start: 20070206, end: 20070308
  30. GUAIFENESIN DM [Concomitant]
     Route: 048
     Dates: start: 20070206, end: 20070308
  31. VERSED [Concomitant]
     Route: 042
     Dates: start: 20070207
  32. K-DUR 10 [Concomitant]
     Route: 048
     Dates: start: 20070207, end: 20070207
  33. MAGNESIUM SULFATE [Concomitant]
     Route: 042
     Dates: start: 20070207, end: 20070207
  34. FENTANYL [Concomitant]
     Dates: start: 20070207
  35. TORADOL [Concomitant]
     Dates: start: 20070206
  36. VICODIN [Concomitant]
  37. MEDROL [Concomitant]
     Indication: PAIN

REACTIONS (12)
  - ABDOMINAL PAIN [None]
  - ABDOMINAL PAIN UPPER [None]
  - DRUG TOXICITY [None]
  - FOOT AMPUTATION [None]
  - GASTRIC PERFORATION [None]
  - GASTRIC ULCER [None]
  - GASTRIC ULCER SURGERY [None]
  - HIATUS HERNIA [None]
  - NAUSEA [None]
  - SKIN DISCOLOURATION [None]
  - TOE AMPUTATION [None]
  - VOMITING [None]
